FAERS Safety Report 5466327-X (Version None)
Quarter: 2007Q3

REPORT INFORMATION
  Report Type: 
  Country: None (occurrence: None)
  Receive Date: 20070920
  Receipt Date: 20070904
  Transmission Date: 20080115
  Serious: Yes (Hospitalization)
  Sender: FDA-Public Use
  Company Number: 2005RL000140

PATIENT
  Age: 79 Year
  Sex: Female
  Weight: 55.7924 kg

DRUGS (7)
  1. PROPAFENONE HYDROCHLORIDE [Suspect]
     Indication: ATRIAL FIBRILLATION
     Dosage: 225 MG; BID; PO
     Route: 048
     Dates: start: 20050810
  2. EVISTA [Concomitant]
  3. GLUCOSAMINE [Concomitant]
  4. CALCIUM [Concomitant]
  5. VITAMIN E [Concomitant]
  6. ASPIRIN [Concomitant]
  7. DILTIAZEM [Concomitant]

REACTIONS (7)
  - ATRIAL FIBRILLATION [None]
  - BRADYCARDIA [None]
  - CONSTIPATION [None]
  - ELECTROCARDIOGRAM ABNORMAL [None]
  - GASTROOESOPHAGEAL REFLUX DISEASE [None]
  - HYPOKALAEMIA [None]
  - INTERNATIONAL NORMALISED RATIO INCREASED [None]
